FAERS Safety Report 7360923-0 (Version None)
Quarter: 2011Q1

REPORT INFORMATION
  Report Type: 
  Country: None (occurrence: None)
  Receive Date: 20110318
  Receipt Date: 20110309
  Transmission Date: 20110831
  Serious: Yes (Death, Hospitalization)
  Sender: FDA-Public Use
  Company Number: SE-ACTELION-A-CH2011-46049

PATIENT
  Age: 79 Year
  Sex: Female

DRUGS (2)
  1. TRACLEER [Suspect]
     Dosage: 62.5 MG, BID
     Route: 048
     Dates: start: 20080401, end: 20080501
  2. TRACLEER [Suspect]
     Indication: PULMONARY ARTERIAL HYPERTENSION
     Dosage: 125 MG, BID
     Route: 048
     Dates: start: 20080501, end: 20110101

REACTIONS (3)
  - CONDITION AGGRAVATED [None]
  - PULMONARY ARTERIAL HYPERTENSION [None]
  - CARDIAC FAILURE [None]
